FAERS Safety Report 7065023-5 (Version None)
Quarter: 2010Q4

REPORT INFORMATION
  Report Type: 
  Country: None (occurrence: None)
  Receive Date: 20101027
  Receipt Date: 20101021
  Transmission Date: 20110411
  Serious: Yes (Hospitalization)
  Sender: FDA-Public Use
  Company Number: IT-ABBOTT-10P-083-0676733-00

PATIENT
  Sex: Female

DRUGS (2)
  1. KALETRA [Suspect]
     Indication: PROPHYLAXIS
     Route: 048
     Dates: start: 20100928, end: 20100930
  2. COMBIVIR [Suspect]
     Indication: PROPHYLAXIS
     Route: 048
     Dates: start: 20100928, end: 20100930

REACTIONS (7)
  - ABDOMINAL PAIN UPPER [None]
  - BLOOD POTASSIUM DECREASED [None]
  - FATIGUE [None]
  - FORMICATION [None]
  - HYPERBILIRUBINAEMIA [None]
  - NAUSEA [None]
  - VOMITING [None]
